FAERS Safety Report 5655412-5 (Version None)
Quarter: 2008Q1

REPORT INFORMATION
  Report Type: 
  Country: None (occurrence: None)
  Receive Date: 20080307
  Receipt Date: 20080227
  Transmission Date: 20080703
  Serious: Yes (Hospitalization, Other)
  Sender: FDA-Public Use
  Company Number: US-MERCK-0708USA02980

PATIENT
  Age: 62 Year
  Sex: Female
  Weight: 90 kg

DRUGS (6)
  1. FOSAMAX [Suspect]
     Indication: OSTEOPENIA
     Route: 048
     Dates: start: 20010124, end: 20020601
  2. NEURONTIN [Concomitant]
     Indication: SCIATIC NERVE INJURY
     Route: 065
     Dates: start: 20000101
  3. CELEBREX [Concomitant]
     Indication: ARTHRALGIA
     Route: 065
     Dates: start: 20000101
  4. FENTANYL [Concomitant]
     Indication: PAIN
     Route: 065
     Dates: start: 19960101
  5. [THERAPY UNSPECIFIED] [Concomitant]
     Indication: HYPERTENSION
     Route: 065
     Dates: start: 19800101, end: 20070101
  6. CORTICOSTEROIDS (UNSPECIFIED) [Concomitant]
     Route: 065
     Dates: start: 19760101, end: 20070101

REACTIONS (26)
  - ABSCESS [None]
  - ACQUIRED OESOPHAGEAL WEB [None]
  - ARTERIOSCLEROSIS CORONARY ARTERY [None]
  - BLOOD CHOLESTEROL INCREASED [None]
  - BRUXISM [None]
  - CHEST PAIN [None]
  - CHOLELITHIASIS [None]
  - CONSTIPATION [None]
  - CYSTOCELE [None]
  - DRUG INTERACTION [None]
  - EXOSTOSIS [None]
  - GASTRITIS [None]
  - GASTRITIS EROSIVE [None]
  - GASTROOESOPHAGEAL REFLUX DISEASE [None]
  - HIATUS HERNIA [None]
  - HYPERLIPIDAEMIA [None]
  - INCONTINENCE [None]
  - INTERVERTEBRAL DISC DISORDER [None]
  - OBESITY [None]
  - OESOPHAGEAL STENOSIS [None]
  - OSTEOARTHRITIS [None]
  - RECTOCELE [None]
  - ROTATOR CUFF SYNDROME [None]
  - SLEEP DISORDER [None]
  - TEMPOROMANDIBULAR JOINT SYNDROME [None]
  - TYPE 2 DIABETES MELLITUS [None]
